FAERS Safety Report 9260382 (Version 2)
Quarter: 2013Q2

REPORT INFORMATION
  Report Type: Report from Study
  Country: BR (occurrence: BR)
  Receive Date: 20130429
  Receipt Date: 20130524
  Transmission Date: 20140414
  Serious: Yes (Other)
  Sender: FDA-Public Use
  Company Number: PHHY2013BR041407

PATIENT
  Sex: Female

DRUGS (4)
  1. DIOVAN HCT [Suspect]
     Indication: HYPERTENSION
  2. DIOVAN [Suspect]
     Indication: HYPERTENSION
     Dosage: 80 MG, DAILY
  3. CLOPIDOGREL [Concomitant]
     Indication: ANTICOAGULANT THERAPY
     Dosage: 1 DF, DAILY
     Route: 048
  4. EXODUS [Concomitant]
     Indication: DEPRESSION
     Dosage: 15 U, DAILY
     Route: 048

REACTIONS (8)
  - Dementia Alzheimer^s type [Not Recovered/Not Resolved]
  - Parkinson^s disease [Not Recovered/Not Resolved]
  - Tremor [Not Recovered/Not Resolved]
  - Speech disorder [Not Recovered/Not Resolved]
  - Cerebrovascular accident [Recovered/Resolved with Sequelae]
  - Abasia [Not Recovered/Not Resolved]
  - Convulsion [Not Recovered/Not Resolved]
  - Blood pressure increased [Not Recovered/Not Resolved]
